FAERS Safety Report 14775664 (Version 1)
Quarter: 2018Q2

REPORT INFORMATION
  Report Type: Report from Study
  Country: CA (occurrence: CA)
  Receive Date: 20180418
  Receipt Date: 20180418
  Transmission Date: 20180711
  Serious: Yes (Other)
  Sender: FDA-Public Use
  Company Number: CA-ACTELION-A-US2016-147348

PATIENT
  Age: 60 Year
  Sex: Male
  Weight: 79.37 kg

DRUGS (21)
  1. UPTRAVI [Suspect]
     Active Substance: SELEXIPAG
     Dosage: 600 MCG, UNK
     Route: 048
  2. POTASSIUM [Concomitant]
     Active Substance: POTASSIUM
  3. DOMPERIDONE [Concomitant]
     Active Substance: DOMPERIDONE
  4. PANTOPRAZOLE [Concomitant]
     Active Substance: PANTOPRAZOLE
  5. UPTRAVI [Suspect]
     Active Substance: SELEXIPAG
     Dosage: 400 MCG, UNK
     Route: 048
  6. VIAGRA [Concomitant]
     Active Substance: SILDENAFIL CITRATE
  7. AZATHIOPRINE. [Concomitant]
     Active Substance: AZATHIOPRINE
  8. ADVIL [Concomitant]
     Active Substance: IBUPROFEN
  9. ASPIRIN. [Concomitant]
     Active Substance: ASPIRIN
  10. REMODULIN [Concomitant]
     Active Substance: TREPROSTINIL
  11. SULFATRIM [Concomitant]
     Active Substance: SULFAMETHOXAZOLE\TRIMETHOPRIM
  12. ATORVASTATIN [Concomitant]
     Active Substance: ATORVASTATIN
  13. OXYGEN. [Concomitant]
     Active Substance: OXYGEN
     Dosage: 7 L/MIN, UNK
  14. FUROSEMIDE. [Concomitant]
     Active Substance: FUROSEMIDE
  15. UPTRAVI [Suspect]
     Active Substance: SELEXIPAG
     Dosage: 1600 MCG, UNK
     Route: 048
  16. AMBRISENTAN [Concomitant]
     Active Substance: AMBRISENTAN
  17. TYLENOL WITH CODEINE [Concomitant]
     Active Substance: ACETAMINOPHEN\CODEINE PHOSPHATE
  18. NOVOSPIROTON [Concomitant]
  19. NITRO-SPRAY [Concomitant]
     Active Substance: ISOSORBIDE DINITRATE
  20. UPTRAVI [Suspect]
     Active Substance: SELEXIPAG
     Indication: PULMONARY ARTERIAL HYPERTENSION
     Dosage: 1600 MCG, BID
     Route: 048
     Dates: start: 20161210
  21. GABAPENTIN. [Concomitant]
     Active Substance: GABAPENTIN

REACTIONS (12)
  - Nasal congestion [Unknown]
  - Asthenia [Unknown]
  - Hyperhidrosis [Unknown]
  - Terminal state [Unknown]
  - Arthralgia [Unknown]
  - Vomiting [Unknown]
  - Dyspnoea [Unknown]
  - Gastroenteritis viral [Not Recovered/Not Resolved]
  - Fatigue [Unknown]
  - Diarrhoea [Unknown]
  - Malaise [Not Recovered/Not Resolved]
  - Dizziness [Not Recovered/Not Resolved]
